FAERS Safety Report 6427940-6 (Version None)
Quarter: 2009Q4

REPORT INFORMATION
  Report Type: 
  Country: None (occurrence: None)
  Receive Date: 20091105
  Receipt Date: 20091021
  Transmission Date: 20100525
  Serious: Yes (Other)
  Sender: FDA-Public Use
  Company Number: PHHY2009BR45835

PATIENT
  Sex: Male
  Weight: 50 kg

DRUGS (4)
  1. FORASEQ [Suspect]
     Indication: HYPERSENSITIVITY
     Dosage: CAPSULE OF EACH SUBSTANCE, EVERY 12 HOURS
     Dates: start: 20080101
  2. FORASEQ [Suspect]
  3. PANTOPRAZOLE [Concomitant]
     Dosage: 1 DF, BID
  4. PREDSIM [Concomitant]
     Dosage: 1 TABLET DAILY, FOR 10 DAYS
     Route: 048

REACTIONS (10)
  - ABDOMINAL DISCOMFORT [None]
  - ASTHENIA [None]
  - CHEST PAIN [None]
  - COUGH [None]
  - DYSPNOEA [None]
  - EATING DISORDER [None]
  - HEADACHE [None]
  - HYPERHIDROSIS [None]
  - NAUSEA [None]
  - SPUTUM ABNORMAL [None]
